FAERS Safety Report 19844477 (Version 2)
Quarter: 2021Q4

REPORT INFORMATION
  Report Type: Spontaneous
  Country: US (occurrence: US)
  Receive Date: 20210916
  Receipt Date: 20211028
  Transmission Date: 20220304
  Serious: Yes (Hospitalization)
  Sender: FDA-Public Use
  Company Number: 2021A720219

PATIENT
  Age: 57 Year
  Sex: Male
  Weight: 90.7 kg

DRUGS (1)
  1. FASENRA [Suspect]
     Active Substance: BENRALIZUMAB
     Indication: Eosinophil count increased
     Route: 058
     Dates: start: 202102

REACTIONS (4)
  - Infection [Unknown]
  - Pruritus [Unknown]
  - Burning sensation [Unknown]
  - Acne [Unknown]

NARRATIVE: CASE EVENT DATE: 20210301
